FAERS Safety Report 9530367 (Version 7)
Quarter: 2014Q3

REPORT INFORMATION
  Report Type: Report from Study
  Country: BR (occurrence: BR)
  Receive Date: 20130918
  Receipt Date: 20140718
  Transmission Date: 20150326
  Serious: Yes (Death)
  Sender: FDA-Public Use
  Company Number: BR-ROCHE-1269456

PATIENT
  Age: 66 Year
  Sex: Female
  Weight: 95.5 kg

DRUGS (11)
  1. NISTATINA [Concomitant]
     Dosage: 300,000 UI
     Route: 065
     Dates: start: 20130630, end: 20130829
  2. TYLEX (BRAZIL) [Concomitant]
     Dosage: 3 TABLETS
     Route: 065
     Dates: start: 20130629, end: 20130829
  3. FORMOTEROL [Concomitant]
     Active Substance: FORMOTEROL
     Route: 065
     Dates: start: 2009, end: 20130829
  4. PERTUZUMAB [Suspect]
     Active Substance: PERTUZUMAB
     Dosage: MAINTANANCE DOSE
     Route: 042
     Dates: start: 20130719, end: 20130829
  5. TRASTUZUMAB [Suspect]
     Active Substance: TRASTUZUMAB
     Dosage: LAST DOSE TAKEN ON 16/AUG/2013, MAINTANANCE DOSE
     Route: 042
     Dates: start: 20130719, end: 20130829
  6. VINORELBINE [Suspect]
     Active Substance: VINORELBINE\VINORELBINE TARTRATE
     Indication: HER-2 POSITIVE BREAST CANCER
     Dosage: LAST DOSE TAKEN ON 23/AUG/2013
     Route: 042
     Dates: start: 20130628, end: 20130829
  7. BUDESONIDE. [Concomitant]
     Active Substance: BUDESONIDE
     Route: 065
     Dates: start: 2009, end: 20130829
  8. PERTUZUMAB [Suspect]
     Active Substance: PERTUZUMAB
     Indication: HER-2 POSITIVE BREAST CANCER
     Dosage: LOADING DOSE
     Route: 042
     Dates: start: 20130628
  9. TRASTUZUMAB [Suspect]
     Active Substance: TRASTUZUMAB
     Indication: HER-2 POSITIVE BREAST CANCER
     Dosage: LOADING DOSE
     Route: 042
     Dates: start: 20130628
  10. OMEPRAZOLE. [Concomitant]
     Active Substance: OMEPRAZOLE
     Route: 065
     Dates: start: 20130627, end: 20130829
  11. CLONAZEPAM. [Concomitant]
     Active Substance: CLONAZEPAM
     Route: 065
     Dates: start: 2005, end: 20130829

REACTIONS (1)
  - Septic shock [Fatal]

NARRATIVE: CASE EVENT DATE: 20130829
